FAERS Safety Report 6645055-9 (Version None)
Quarter: 2010Q1

REPORT INFORMATION
  Report Type: 
  Country: None (occurrence: None)
  Receive Date: 20100319
  Receipt Date: 20100319
  Transmission Date: 20100710
  Serious: Yes (Life-Threatening, Hospitalization)
  Sender: FDA-Public Use
  Company Number: None

PATIENT
  Age: 46 Year
  Sex: Female
  Weight: 104 kg

DRUGS (1)
  1. PORTIA-21 [Suspect]
     Indication: ORAL CONTRACEPTION
     Dosage: 1 TAB DAILY PO, PTA OR 11/27/09
     Route: 048

REACTIONS (1)
  - PULMONARY EMBOLISM [None]
